FAERS Safety Report 11544654 (Version 1)
Quarter: 2015Q3

REPORT INFORMATION
  Report Type: Spontaneous
  Country: US (occurrence: None)
  Receive Date: 20150923
  Receipt Date: 20150923
  Transmission Date: 20151125
  Serious: No
  Sender: FDA-Public Use
  Company Number: None

PATIENT
  Age: 81 Year
  Sex: Male

DRUGS (17)
  1. EPOETIN [Concomitant]
     Active Substance: ERYTHROPOIETIN
  2. OMEPRAZOLE. [Concomitant]
     Active Substance: OMEPRAZOLE
  3. FUROSEMIDE. [Concomitant]
     Active Substance: FUROSEMIDE
  4. DIGOXIN. [Concomitant]
     Active Substance: DIGOXIN
  5. FERROUS SULFATE [Concomitant]
     Active Substance: FERROUS SULFATE\FERROUS SULFATE, DRIED
  6. LOSARTAN. [Concomitant]
     Active Substance: LOSARTAN
  7. BOSENTAN [Concomitant]
     Active Substance: BOSENTAN
  8. TAMSULOSIN [Concomitant]
     Active Substance: TAMSULOSIN
  9. GABAPENTIN. [Concomitant]
     Active Substance: GABAPENTIN
  10. LEVOTHYROXINE. [Concomitant]
     Active Substance: LEVOTHYROXINE
  11. ASPIRIN. [Concomitant]
     Active Substance: ASPIRIN
  12. CALCIUM CARBONATE. [Concomitant]
     Active Substance: CALCIUM CARBONATE
  13. TRACLEER [Suspect]
     Active Substance: BOSENTAN
     Indication: PULMONARY ARTERIAL HYPERTENSION
     Route: 048
     Dates: start: 201205, end: 20150916
  14. METOLAZONE. [Concomitant]
     Active Substance: METOLAZONE
  15. WARFARIN [Concomitant]
     Active Substance: WARFARIN
  16. METOPROLOL [Concomitant]
     Active Substance: METOPROLOL
  17. PRAVASTATIN [Concomitant]
     Active Substance: PRAVASTATIN\PRAVASTATIN SODIUM

REACTIONS (3)
  - Blood alkaline phosphatase increased [None]
  - Liver function test abnormal [None]
  - Diastolic dysfunction [None]

NARRATIVE: CASE EVENT DATE: 20150910
